FAERS Safety Report 7204448-1 (Version None)
Quarter: 2010Q4

REPORT INFORMATION
  Report Type: 
  Country: None (occurrence: None)
  Receive Date: 20101220
  Receipt Date: 20101210
  Transmission Date: 20110411
  Serious: Yes (Hospitalization, Other)
  Sender: FDA-Public Use
  Company Number: 110304

PATIENT
  Age: 46 Year
  Sex: Female

DRUGS (1)
  1. ORPHENADRINE CITRATE [Suspect]
     Dosage: 40 X 100MG TABLETS

REACTIONS (17)
  - BLOOD PRESSURE SYSTOLIC INCREASED [None]
  - BODY TEMPERATURE INCREASED [None]
  - CERVICOBRACHIAL SYNDROME [None]
  - CONVULSION [None]
  - DRUG TOXICITY [None]
  - DRY SKIN [None]
  - HEART RATE INCREASED [None]
  - INTENTIONAL OVERDOSE [None]
  - JOINT DISLOCATION [None]
  - JOINT RANGE OF MOTION DECREASED [None]
  - LOSS OF CONSCIOUSNESS [None]
  - MEDICATION ERROR [None]
  - MUSCLE ATROPHY [None]
  - MUSCULOSKELETAL PAIN [None]
  - NAUSEA [None]
  - RHABDOMYOLYSIS [None]
  - SUICIDE ATTEMPT [None]
